FAERS Safety Report 8798954 (Version 1)
Quarter: 2012Q4

REPORT INFORMATION
  Report Type: 
  Country: US (occurrence: US)
  Receive Date: 20120920
  Receipt Date: 20120920
  Transmission Date: 20130627
  Serious: Yes (Death, Other)
  Sender: FDA-Public Use
  Company Number: US-ELI_LILLY_AND_COMPANY-US201209004943

PATIENT
  Age: 19 Year

DRUGS (2)
  1. GEMCITABINE HYDROCHLORIDE [Suspect]
     Indication: RHABDOMYOSARCOMA
     Dosage: 675 mg/m2, other
     Route: 042
  2. DOCETAXEL [Concomitant]
     Dosage: 75 mg/m2, other

REACTIONS (3)
  - Neoplasm progression [Fatal]
  - Blood creatinine increased [Unknown]
  - Hypercalcaemia [Unknown]
